FAERS Safety Report 9466612 (Version 1)
Quarter: 2013Q3

REPORT INFORMATION
  Report Type: Spontaneous
  Country: DE (occurrence: DE)
  Receive Date: 20130820
  Receipt Date: 20130820
  Transmission Date: 20140515
  Serious: Yes (Death)
  Sender: FDA-Public Use
  Company Number: GXKR2013DE002724

PATIENT
  Age: 60 Year
  Sex: Male
  Weight: 82 kg

DRUGS (2)
  1. 5-FLUOROURACIL [Suspect]
     Indication: RECTAL CANCER
     Dosage: DAILY DOSE: 4200 MG MILLIGRAM(S) EVERY DAY
     Route: 042
     Dates: start: 20130801, end: 20130802
  2. 5-FLUOROURACIL [Suspect]
     Dosage: DAILY DOSE: 4200 MG MILLIGRAM(S) EVERY DAY
     Route: 042
     Dates: start: 20130808

REACTIONS (1)
  - Sudden cardiac death [Fatal]
